FAERS Safety Report 9163340 (Version 1)
Quarter: 2013Q1

REPORT INFORMATION
  Report Type: Spontaneous
  Country: US (occurrence: US)
  Receive Date: 20130314
  Receipt Date: 20130314
  Transmission Date: 20140127
  Serious: Yes (Death)
  Sender: FDA-Public Use
  Company Number: US-JNJFOC-20130304456

PATIENT
  Age: 63 Year
  Sex: Male
  Weight: 73.94 kg

DRUGS (1)
  1. EXTRA STRENGTH TYLENOL [Suspect]
     Indication: PYREXIA
     Dosage: 4 CAPLETS IN ONE DAY
     Route: 048

REACTIONS (2)
  - Pneumonia [Fatal]
  - Product taste abnormal [Unknown]
